FAERS Safety Report 7637888-7 (Version None)
Quarter: 2011Q3

REPORT INFORMATION
  Report Type: 
  Country: None (occurrence: None)
  Receive Date: 20110711
  Receipt Date: 20110401
  Transmission Date: 20111222
  Serious: Yes (Other)
  Sender: FDA-Public Use
  Company Number: IPC201104-000552

PATIENT
  Sex: Female

DRUGS (6)
  1. REGLAN [Suspect]
     Dates: start: 20011101, end: 20100401
  2. METOCLOPRAMIDE [Suspect]
     Dates: start: 20011101, end: 20100401
  3. METOCLOPRAMIDE HYDROCHLORIDE [Suspect]
     Dates: start: 20011101, end: 20100401
  4. METOCLOPRAMIDE [Suspect]
     Dates: start: 20011101, end: 20100401
  5. METOCLOPRAMIDE [Suspect]
     Dates: start: 20011101, end: 20100401
  6. METOCLOPRAMIDE [Suspect]
     Dates: start: 20011101, end: 20100401

REACTIONS (4)
  - CHOREA [None]
  - EXTRAPYRAMIDAL DISORDER [None]
  - TARDIVE DYSKINESIA [None]
  - DYSKINESIA [None]
